FAERS Safety Report 9037973 (Version 1)
Quarter: 2013Q1

REPORT INFORMATION
  Report Type: Report from Study
  Country: US (occurrence: US)
  Receive Date: 20130129
  Receipt Date: 20130129
  Transmission Date: 20140127
  Serious: No
  Sender: FDA-Public Use
  Company Number: US-ABBOTT-11P-163-0871752-00

PATIENT
  Sex: Male
  Weight: 78.54 kg

DRUGS (5)
  1. HUMIRA 40 MG/0.8 ML PEN [Suspect]
     Indication: CROHN^S DISEASE
     Dosage: INITIAL LOADING DOSE
     Dates: start: 20111021
  2. WARFARIN [Concomitant]
     Indication: THROMBOSIS
  3. LIALDA [Concomitant]
     Indication: PRODUCT USED FOR UNKNOWN INDICATION
  4. CELEXA [Concomitant]
     Indication: DEPRESSION
  5. FEXOFENADINE [Concomitant]
     Indication: HYPERSENSITIVITY

REACTIONS (2)
  - Fatigue [Recovered/Resolved]
  - Crohn^s disease [Not Recovered/Not Resolved]
